FAERS Safety Report 5750113-7 (Version None)
Quarter: 2008Q2

REPORT INFORMATION
  Report Type: 
  Country: None (occurrence: None)
  Receive Date: 20080527
  Receipt Date: 20080508
  Transmission Date: 20081010
  Serious: Yes (Other)
  Sender: FDA-Public Use
  Company Number: IE-PFIZER INC-2008029834

PATIENT
  Age: 62 Year
  Sex: Female

DRUGS (8)
  1. CHANTIX [Suspect]
     Indication: SMOKING CESSATION THERAPY
     Route: 048
  2. METFORMIN HCL [Concomitant]
  3. GLUCOPHAGE [Concomitant]
     Route: 048
  4. REGURIN [Concomitant]
     Route: 048
  5. NU-SEALS [Concomitant]
     Route: 048
  6. PRAVASTATIN [Concomitant]
     Route: 048
  7. CARDURA [Concomitant]
     Route: 048
  8. VENTOLIN [Concomitant]
     Route: 055

REACTIONS (1)
  - BLOOD GLUCOSE INCREASED [None]
